FAERS Safety Report 11323860 (Version 1)
Quarter: 2015Q3

REPORT INFORMATION
  Report Type: Spontaneous
  Country: DE (occurrence: DE)
  Receive Date: 20150730
  Receipt Date: 20150730
  Transmission Date: 20151125
  Serious: Yes (Death, Congenital Anomaly)
  Sender: FDA-Public Use
  Company Number: GXKR2015DE003577

PATIENT

DRUGS (6)
  1. METFORMIN [Suspect]
     Active Substance: METFORMIN HYDROCHLORIDE
     Indication: POLYCYSTIC OVARIES
     Route: 064
     Dates: start: 20140625, end: 20140807
  2. FOLSAEURE [Concomitant]
     Active Substance: FOLIC ACID
     Indication: PROPHYLAXIS OF NEURAL TUBE DEFECT
     Dosage: 0.8 [MG/D ]/ REDUCTION TO 0.4 MG/D
     Route: 064
  3. SALBUTAMOL [Concomitant]
     Active Substance: ALBUTEROL
     Indication: ASTHMA
     Route: 064
     Dates: start: 20140625, end: 20141122
  4. PAROXETINE [Suspect]
     Active Substance: PAROXETINE\PAROXETINE HYDROCHLORIDE
     Indication: ANXIETY DISORDER
     Dosage: 30 [MG/D ]/ NO INTAKE IN GESTATIONAL WEEK 4+0 UNTIL 8+5
     Route: 064
     Dates: start: 20140625, end: 20141122
  5. SERTRALINE [Suspect]
     Active Substance: SERTRALINE HYDROCHLORIDE
     Indication: ANXIETY DISORDER
     Route: 064
     Dates: start: 20140723, end: 20140825
  6. JUNIK [Concomitant]
     Active Substance: BECLOMETHASONE DIPROPIONATE
     Indication: ASTHMA
     Dosage: 0.2 [MG/D ]
     Route: 064
     Dates: start: 20140625, end: 20141122

REACTIONS (1)
  - Congenital hydrocephalus [Fatal]
